FAERS Safety Report 5840526-7 (Version None)
Quarter: 2008Q3

REPORT INFORMATION
  Report Type: 
  Country: None (occurrence: None)
  Receive Date: 20080807
  Receipt Date: 20080723
  Transmission Date: 20090109
  Serious: Yes (Other)
  Sender: FDA-Public Use
  Company Number: 2007BI011074

PATIENT
  Age: 43 Year
  Sex: Male

DRUGS (5)
  1. TYSABRI [Suspect]
     Indication: MULTIPLE SCLEROSIS
     Dosage: 300 MG; QM; IV; 300 MG; QM; IV
     Route: 042
     Dates: start: 20061026, end: 20070301
  2. TYSABRI [Suspect]
     Indication: MULTIPLE SCLEROSIS
     Dosage: 300 MG; QM; IV; 300 MG; QM; IV
     Route: 042
     Dates: start: 20070901, end: 20071001
  3. SPIRULINA (CON.) [Concomitant]
  4. MULTIVITAMINS (CON.) [Concomitant]
  5. PREDNISONE (CON.) [Concomitant]

REACTIONS (17)
  - AUTOIMMUNE DISORDER [None]
  - AUTOIMMUNE HEPATITIS [None]
  - BLOOD ALBUMIN DECREASED [None]
  - BLOOD CREATININE INCREASED [None]
  - BLOOD UREA INCREASED [None]
  - CERULOPLASMIN INCREASED [None]
  - CHILLS [None]
  - CONSTIPATION [None]
  - FATIGUE [None]
  - FIBROSIS [None]
  - FLUSHING [None]
  - HAEMATOCHEZIA [None]
  - HYDRONEPHROSIS [None]
  - INTERNATIONAL NORMALISED RATIO INCREASED [None]
  - NEPHROLITHIASIS [None]
  - PAIN [None]
  - SERUM FERRITIN INCREASED [None]
